FAERS Safety Report 21438530 (Version 3)
Quarter: 2022Q4

REPORT INFORMATION
  Report Type: Spontaneous
  Country: BE (occurrence: BE)
  Receive Date: 20221011
  Receipt Date: 20221226
  Transmission Date: 20230112
  Serious: Yes (Other)
  Sender: FDA-Public Use
  Company Number: BE-NOVARTISPH-NVSC2022BE225279

PATIENT
  Sex: Female

DRUGS (6)
  1. KISQALI [Suspect]
     Active Substance: RIBOCICLIB
     Indication: Product used for unknown indication
     Dosage: 150 MG
     Route: 065
  2. KISQALI [Suspect]
     Active Substance: RIBOCICLIB
     Dosage: UNK
     Route: 065
     Dates: start: 20220504, end: 20220704
  3. KISQALI [Suspect]
     Active Substance: RIBOCICLIB
     Dosage: 200 MG, TID (3X IN THE EVENING)
     Route: 065
     Dates: start: 20220720, end: 20220816
  4. FEMARA [Suspect]
     Active Substance: LETROZOLE
     Indication: Product used for unknown indication
     Dosage: 2.5 MG (IN THE EVENEING)
     Route: 065
     Dates: start: 20220915
  5. IBRANCE [Concomitant]
     Active Substance: PALBOCICLIB
     Indication: Product used for unknown indication
     Dosage: UNK
     Route: 065
     Dates: start: 20220915, end: 20221110
  6. EBASTINE [Concomitant]
     Active Substance: EBASTINE
     Indication: Product used for unknown indication
     Dosage: UNK
     Route: 065
     Dates: start: 20220816, end: 20220913

REACTIONS (7)
  - Toxic skin eruption [Not Recovered/Not Resolved]
  - Superficial inflammatory dermatosis [Unknown]
  - Mucosal inflammation [Unknown]
  - Transient acantholytic dermatosis [Unknown]
  - Drug eruption [Unknown]
  - Acne [Unknown]
  - Rash maculo-papular [Unknown]
